FAERS Safety Report 23326192 (Version 1)
Quarter: 2023Q4

REPORT INFORMATION
  Report Type: Spontaneous
  Country: US (occurrence: US)
  Receive Date: 20231221
  Receipt Date: 20231221
  Transmission Date: 20240109
  Serious: Yes (Hospitalization)
  Sender: FDA-Public Use
  Company Number: US-MYLANLABS-2023M1135744

PATIENT
  Age: 16 Year

DRUGS (1)
  1. FLUOXETINE [Suspect]
     Active Substance: FLUOXETINE HYDROCHLORIDE
     Indication: Product used for unknown indication
     Dosage: 600 MILLIGRAM, 12.5MG/KG
     Route: 048

REACTIONS (10)
  - Intentional overdose [Unknown]
  - Toxicity to various agents [Unknown]
  - Generalised tonic-clonic seizure [Unknown]
  - Tachycardia [Unknown]
  - Nystagmus [Unknown]
  - Hypertonia [Unknown]
  - Leukocytosis [Unknown]
  - Electrocardiogram QT prolonged [Unknown]
  - Mydriasis [Recovered/Resolved]
  - Hyperreflexia [Recovered/Resolved]
